FAERS Safety Report 18360062 (Version 3)
Quarter: 2022Q3

REPORT INFORMATION
  Report Type: Spontaneous
  Country: FR (occurrence: FR)
  Receive Date: 20201008
  Receipt Date: 20220705
  Transmission Date: 20221027
  Serious: Yes (Hospitalization)
  Sender: FDA-Public Use
  Company Number: None

PATIENT
  Age: 61 Year
  Sex: Male
  Weight: 83.6 kg

DRUGS (10)
  1. EXJADE [Suspect]
     Active Substance: DEFERASIROX
     Indication: Iron overload
     Dosage: 360 MG, QD
     Route: 048
     Dates: end: 20190523
  2. EXJADE [Suspect]
     Active Substance: DEFERASIROX
     Dosage: 360 MG, QD (1-0-1)
     Route: 048
     Dates: end: 20190525
  3. EXJADE [Suspect]
     Active Substance: DEFERASIROX
     Dosage: 180 MG, QD
     Route: 048
     Dates: start: 20190525, end: 20190531
  4. EXJADE [Suspect]
     Active Substance: DEFERASIROX
     Dosage: 360 MG, QD (1-0-1)
     Route: 048
     Dates: start: 20190606, end: 20190616
  5. PIPERACILLIN SODIUM\TAZOBACTAM SODIUM [Suspect]
     Active Substance: PIPERACILLIN SODIUM\TAZOBACTAM SODIUM
     Indication: Infection
     Dosage: 4 DF, QD
     Route: 042
     Dates: start: 20190526, end: 20190621
  6. FLUCONAZOLE [Suspect]
     Active Substance: FLUCONAZOLE
     Indication: Fungal infection
     Dosage: 400 MG, QD (2-0-0)
     Route: 048
     Dates: start: 20190524, end: 20190527
  7. ATORVASTATIN [Suspect]
     Active Substance: ATORVASTATIN
     Indication: Hypercholesterolaemia
     Dosage: 40 MG, QD (0-0-1)
     Route: 048
     Dates: start: 20190522, end: 20190619
  8. VALACYCLOVIR [Suspect]
     Active Substance: VALACYCLOVIR HYDROCHLORIDE
     Indication: Antiviral treatment
     Dosage: 1000 MG, QD (1-0-1)
     Route: 048
     Dates: start: 20190523
  9. NOXAFIL [Suspect]
     Active Substance: POSACONAZOLE
     Indication: Fungal infection
     Dosage: 300 MG, QD (3-0-0, END DATE REPORTED AS 21 JUN 2019)
     Route: 048
     Dates: start: 20190528
  10. CRESTOR [Concomitant]
     Active Substance: ROSUVASTATIN CALCIUM
     Indication: Hypercholesterolaemia
     Dosage: 5 MG, QD
     Route: 048
     Dates: end: 20190522

REACTIONS (3)
  - Cholestasis [Recovering/Resolving]
  - Condition aggravated [Recovering/Resolving]
  - Hepatic cytolysis [Recovering/Resolving]

NARRATIVE: CASE EVENT DATE: 20190530
